FAERS Safety Report 17248473 (Version 1)
Quarter: 2020Q1

REPORT INFORMATION
  Report Type: Spontaneous
  Country: CA (occurrence: CA)
  Receive Date: 20200108
  Receipt Date: 20200108
  Transmission Date: 20200409
  Serious: Yes (Hospitalization, Disabling)
  Sender: FDA-Public Use
  Company Number: CA-TEVA-2020-CA-1165913

PATIENT
  Age: 63 Year
  Sex: Female

DRUGS (6)
  1. CITALOPRAM [Concomitant]
     Active Substance: CITALOPRAM HYDROBROMIDE
  2. SYNTHROID [Concomitant]
     Active Substance: LEVOTHYROXINE SODIUM
  3. LOSARTAN. [Suspect]
     Active Substance: LOSARTAN
     Indication: HYPERTENSION
     Dosage: 25 MILLIGRAM DAILY;
     Route: 048
  4. CALCIUM [Concomitant]
     Active Substance: CALCIUM
  5. ATORVASTATIN [Concomitant]
     Active Substance: ATORVASTATIN
  6. D-TABS [Concomitant]
     Active Substance: CHOLECALCIFEROL

REACTIONS (2)
  - Anosmia [Recovering/Resolving]
  - Taste disorder [Recovering/Resolving]
